FAERS Safety Report 19496423 (Version 1)
Quarter: 2021Q3

REPORT INFORMATION
  Report Type: Spontaneous
  Country: CA (occurrence: CA)
  Receive Date: 20210706
  Receipt Date: 20210706
  Transmission Date: 20211014
  Serious: Yes (Death)
  Sender: FDA-Public Use
  Company Number: CA-STRIDES ARCOLAB LIMITED-2021SP007290

PATIENT

DRUGS (6)
  1. VANCOMYCIN [Suspect]
     Active Substance: VANCOMYCIN
     Indication: STAPHYLOCOCCAL INFECTION
     Dosage: UNK
     Route: 065
  2. CEFTOBIPROLE [Suspect]
     Active Substance: CEFTOBIPROLE
     Indication: BACTERAEMIA
  3. CEFTOBIPROLE [Suspect]
     Active Substance: CEFTOBIPROLE
     Indication: STAPHYLOCOCCAL INFECTION
     Dosage: 500 MILLIGRAM, EVERY 8 HRS (USING A 2?H INFUSION)
     Route: 042
  4. CEFTOBIPROLE [Suspect]
     Active Substance: CEFTOBIPROLE
     Indication: PNEUMONIA BACTERIAL
  5. VANCOMYCIN [Suspect]
     Active Substance: VANCOMYCIN
     Indication: PNEUMONIA BACTERIAL
     Dosage: UNK (LESS THAN 7 DAYS)
     Route: 065
  6. VANCOMYCIN [Suspect]
     Active Substance: VANCOMYCIN
     Indication: BACTERAEMIA

REACTIONS (1)
  - Drug ineffective [Fatal]
